FAERS Safety Report 7336596-X (Version None)
Quarter: 2011Q1

REPORT INFORMATION
  Report Type: 
  Country: None (occurrence: None)
  Receive Date: 20110307
  Receipt Date: 20110225
  Transmission Date: 20110831
  Serious: Yes (Hospitalization, Other)
  Sender: FDA-Public Use
  Company Number: FR-AMGEN-FRASP2011010825

PATIENT
  Age: 81 Year
  Sex: Male
  Weight: 75 kg

DRUGS (5)
  1. CRESTOR [Concomitant]
     Indication: HYPERCHOLESTEROLAEMIA
     Dosage: 5 MG, UNK
     Route: 048
     Dates: start: 20040101
  2. ARANESP [Suspect]
     Indication: RENAL FAILURE CHRONIC
     Dosage: 40 A?G, QWK
     Route: 058
     Dates: start: 20100904, end: 20110219
  3. RAMIPRIL [Concomitant]
     Indication: HYPERTENSION
     Dosage: 2.5 MG, UNK
     Route: 048
     Dates: start: 20000101
  4. NOVONORM [Concomitant]
     Indication: DIABETES MELLITUS
     Dosage: 2 MG, UNK
     Route: 048
     Dates: start: 20060101
  5. DOXAZOSIN MESYLATE [Concomitant]
     Indication: BENIGN PROSTATIC HYPERPLASIA
     Dosage: 4 MG, UNK
     Dates: start: 20060101

REACTIONS (2)
  - ANAEMIA [None]
  - APLASIA PURE RED CELL [None]
